FAERS Safety Report 16635444 (Version 2)
Quarter: 2020Q2

REPORT INFORMATION
  Report Type: Other
  Country: BW (occurrence: BW)
  Receive Date: 20190726
  Receipt Date: 20200429
  Transmission Date: 20200713
  Serious: Yes (Death, Congenital Anomaly, Other)
  Sender: FDA-Public Use
  Company Number: US-MACLEODS PHARMACEUTICALS US LTD-MAC2019022220

PATIENT

DRUGS (4)
  1. ABACAVIR. [Suspect]
     Active Substance: ABACAVIR
     Indication: PRODUCT USED FOR UNKNOWN INDICATION
     Dosage: UNK, 1 COURSE, PRIOR TO CONCEPTION, FIRST TRIMESTER
     Route: 064
  2. TIVICAY [Suspect]
     Active Substance: DOLUTEGRAVIR SODIUM
     Indication: PRODUCT USED FOR UNKNOWN INDICATION
     Dosage: UNK, 1 COURSE, PRIOR TO CONCEPTION, FIRST TRIMESTER, ENDED ON 22 WEEK
     Route: 064
  3. LAMIVUDINE. [Suspect]
     Active Substance: LAMIVUDINE
     Indication: PRODUCT USED FOR UNKNOWN INDICATION
     Dosage: UNK, 1 COURSE, PRIOR TO CONCEPTION, FIRST TRIMESTER
     Route: 064
  4. EFAVIRENZ. [Suspect]
     Active Substance: EFAVIRENZ
     Indication: PRODUCT USED FOR UNKNOWN INDICATION
     Dosage: UNK, 1 COURSE, SECOND TRIMESTER, STARTED ON 22ND WEEK
     Route: 064

REACTIONS (3)
  - Hydrocephalus [Fatal]
  - Foetal exposure during pregnancy [Fatal]
  - Meningomyelocele [Fatal]
